FAERS Safety Report 4356119-7 (Version None)
Quarter: 2004Q2

REPORT INFORMATION
  Report Type: 
  Country: None (occurrence: None)
  Receive Date: 20040511
  Receipt Date: 20040429
  Transmission Date: 20050107
  Serious: Yes (Other)
  Sender: FDA-Public Use
  Company Number: ES-GLAXOSMITHKLINE-B0331580A

PATIENT
  Age: 34 Year
  Sex: Male

DRUGS (1)
  1. BUPROPION HYDROCHLORIDE [Suspect]
     Dates: start: 20031220

REACTIONS (5)
  - AGGRESSION [None]
  - DEPERSONALISATION [None]
  - FOOD INTERACTION [None]
  - HOSTILITY [None]
  - MEMORY IMPAIRMENT [None]
